FAERS Safety Report 7779660-3 (Version None)
Quarter: 2011Q3

REPORT INFORMATION
  Report Type: 
  Country: None (occurrence: None)
  Receive Date: 20110927
  Receipt Date: 20090401
  Transmission Date: 20111222
  Serious: Yes (Disabling, Other)
  Sender: FDA-Public Use
  Company Number: US-BAYER-200811217NA

PATIENT
  Sex: Male
  Weight: 77.098 kg

DRUGS (58)
  1. OMNISCAN [Suspect]
     Indication: NUCLEAR MAGNETIC RESONANCE IMAGING ABDOMINAL
     Dates: start: 20041222, end: 20041222
  2. OMNISCAN [Suspect]
     Dosage: UNK
     Dates: start: 20050311, end: 20050311
  3. PROZAC [Concomitant]
     Indication: DEPRESSION
     Dosage: 80 MG DAILY
  4. NOVOLOG [Concomitant]
     Indication: BLOOD GLUCOSE ABNORMAL
     Dosage: UNK
     Dates: start: 20050101, end: 20080101
  5. METHADONE HCL [Concomitant]
     Indication: PAIN
     Dosage: 80 MG DAILY
     Route: 048
  6. BUMEX [Concomitant]
     Dosage: 2 MG DAILY
     Route: 048
  7. MAGNEVIST [Suspect]
     Indication: NUCLEAR MAGNETIC RESONANCE IMAGING ABDOMINAL
     Dates: start: 20041208, end: 20041208
  8. OMNISCAN [Suspect]
     Indication: ANGIOGRAM
     Dates: start: 20050227, end: 20050227
  9. DILAUDID [Concomitant]
     Dosage: 2 MG, ONE TABLET EVERY 4 HOURS AS NEEDED
     Route: 048
  10. LANTUS [Concomitant]
     Indication: BLOOD GLUCOSE ABNORMAL
     Dosage: UNK
     Dates: start: 20050101, end: 20080101
  11. WARFARIN SODIUM [Concomitant]
     Indication: THROMBOSIS PROPHYLAXIS
     Dosage: 1 MG DAILY
     Dates: start: 20050101
  12. URSODIOL [Concomitant]
     Dosage: 300 MG DAILY
  13. FLUOXETINE [Concomitant]
     Dosage: 10 MG DAILY
     Route: 048
  14. BACITRACIN [Concomitant]
  15. ATROVENT [Concomitant]
     Dosage: INHALER
     Route: 045
  16. RIBAVIRIN [Concomitant]
     Dosage: 100 MG EVERY DAY
     Route: 048
     Dates: start: 20031201
  17. NADOLOL [Concomitant]
     Dosage: 20 MG EVERY DAY
  18. EPO [Concomitant]
  19. LEVOTHYROXINE SODIUM [Concomitant]
     Dosage: 50 MCG, ONCE DAILY
     Route: 048
  20. HYDROCHLOROTHIAZIDE [Concomitant]
     Dosage: 100 MG DAILY
     Route: 048
  21. PREDNISONE [Concomitant]
     Indication: PROPHYLAXIS AGAINST TRANSPLANT REJECTION
     Dosage: TAPERING DOSE
     Dates: start: 20041201
  22. SILVADENE [Concomitant]
     Dosage: 1% CREAM, 1 LAYER TWICE A DAY
     Route: 061
  23. NEPHROVITE [VIT C,VIT H,B5,B12,B9,B3,B6,B2,B1 HCL] [Concomitant]
     Dosage: ONE TABLET DAILY
     Route: 048
  24. SILVER SULFADIAZINE [Concomitant]
     Dosage: 1% CREAM
  25. LIDODERM [Concomitant]
     Indication: PAIN
  26. ALDACTONE [Concomitant]
     Dosage: 100 MG
  27. PRANDIN [Concomitant]
     Indication: BLOOD GLUCOSE ABNORMAL
     Dosage: 2-6 MG THREE TIMES DAILY
     Dates: start: 20050101
  28. PROCRIT [Concomitant]
  29. DARBEPOETIN ALFA [Concomitant]
     Dosage: 80 MCG ONCE EVERY WEEK
     Route: 058
  30. PROPOXYPHENE HCL AND ACETAMINOPHEN [Concomitant]
     Indication: PAIN
     Dosage: UNK
     Dates: start: 20060101
  31. LINEZOLID [Concomitant]
     Dosage: 600 MG TWICE DAILY
     Dates: start: 20050201
  32. TRIAMTERENE [Concomitant]
     Route: 048
  33. TACROLIMUS [Concomitant]
     Dosage: 6 MG TWO TIMES A DAY
     Route: 048
     Dates: start: 20041201
  34. KEFLEX [Concomitant]
     Dosage: UNK
     Dates: start: 20040101
  35. LACTULOSE [Concomitant]
     Dosage: 30 ML EVERY DAY
  36. PROTONIX [Concomitant]
     Dosage: 40 MG DAILY
     Route: 048
  37. VITAMIN D [Concomitant]
     Dosage: 50,000 MG ONCE A WEEK
  38. EPOGEN [Concomitant]
  39. TRAZODONE HYDROCHLORIDE [Concomitant]
     Dosage: 25 MG, DAILY AT BEDTIME AS NEEDED
     Route: 048
  40. PROHANCE [Suspect]
     Indication: NUCLEAR MAGNETIC RESONANCE IMAGING ABDOMINAL
     Dates: start: 20040730, end: 20040730
  41. ALLOPURINOL [Concomitant]
     Dosage: 100 MG DAILY
     Route: 048
     Dates: start: 20050101
  42. SLOW MAG [Concomitant]
     Dosage: 64 MG ONCE DAILY
  43. LEVOTHYROXINE SODIUM [Concomitant]
     Dosage: 50 MCG DAILY
     Route: 048
  44. BACLOFEN [Concomitant]
     Indication: MUSCLE RELAXANT THERAPY
     Dosage: 30 MG THREE TIMES DAILY
  45. HYDROMORPHONE HCL [Concomitant]
     Indication: PAIN
     Dosage: UNK
     Dates: start: 20050101
  46. HYDROMORPHONE HCL [Concomitant]
     Dosage: UNK
     Dates: start: 20060101
  47. PROPOXYPHENE HCL AND ACETAMINOPHEN [Concomitant]
     Dosage: UNK
     Dates: start: 20070101
  48. LASIX [Concomitant]
     Dosage: 40 MG, ONCE DAILY
     Route: 048
  49. PRAVACHOL [Concomitant]
     Indication: BLOOD CHOLESTEROL ABNORMAL
     Dosage: 20 MG DAILY
  50. PEGASYS [Concomitant]
     Dosage: 180 MCG EVERY WEEK
     Route: 058
     Dates: start: 20031201
  51. VALCYTE [Concomitant]
     Dosage: 450 MG
     Route: 048
  52. MEGACE [Concomitant]
     Dosage: 400 MG BY MOUTH TWICE A DAY
     Route: 048
     Dates: start: 20050301
  53. ACTONEL [Concomitant]
     Dosage: 35 MG
     Route: 048
  54. POTASSIUM [Concomitant]
     Dosage: 20 MEQ DAILY
  55. NEOMYCIN [Concomitant]
     Dosage: UNK
     Dates: start: 20040101
  56. PREDNISONE [Concomitant]
     Dosage: 5 MG DAILY
  57. HEPARIN [Concomitant]
     Indication: THROMBOSIS PROPHYLAXIS
     Dosage: UNK
     Route: 058
     Dates: start: 20050101, end: 20050501
  58. HYDROMORPHONE HCL [Concomitant]
     Dosage: UNK
     Dates: start: 20070101

REACTIONS (18)
  - SKIN TIGHTNESS [None]
  - SCAR [None]
  - ARTHROPATHY [None]
  - ABASIA [None]
  - MOBILITY DECREASED [None]
  - SKIN DISORDER [None]
  - ASTHENIA [None]
  - COORDINATION ABNORMAL [None]
  - PARALYSIS [None]
  - RASH [None]
  - NEPHROGENIC SYSTEMIC FIBROSIS [None]
  - PAIN [None]
  - MUSCLE CONTRACTURE [None]
  - ANHEDONIA [None]
  - ANXIETY [None]
  - SKIN LESION [None]
  - DEAFNESS [None]
  - ARTHRALGIA [None]
